FAERS Safety Report 8205784-2 (Version None)
Quarter: 2012Q1

REPORT INFORMATION
  Report Type: 
  Country: None (occurrence: None)
  Receive Date: 20120313
  Receipt Date: 20120306
  Transmission Date: 20120608
  Serious: No
  Sender: FDA-Public Use
  Company Number: US-PFIZER INC-2012023416

PATIENT
  Sex: Male
  Weight: 96.145 kg

DRUGS (5)
  1. ZYVOX [Suspect]
     Indication: SKIN INFECTION
  2. ZYVOX [Suspect]
     Indication: LOCALISED INFECTION
     Dosage: 600 MG, 2X/DAY
     Route: 048
     Dates: start: 20120118, end: 20120126
  3. ZYVOX [Suspect]
     Indication: SOFT TISSUE INFECTION
  4. METOPROLOL [Concomitant]
     Indication: BLOOD PRESSURE ABNORMAL
     Dosage: 100 MG, DAILY
  5. LISINOPRIL [Concomitant]
     Indication: BLOOD PRESSURE ABNORMAL
     Dosage: 100 MG, DAILY

REACTIONS (4)
  - HEART RATE INCREASED [None]
  - FATIGUE [None]
  - DIZZINESS [None]
  - DYSPNOEA [None]
